FAERS Safety Report 9549093 (Version 3)
Quarter: 2014Q1

REPORT INFORMATION
  Report Type: Report from Study
  Country: BR (occurrence: BR)
  Receive Date: 20130924
  Receipt Date: 20140306
  Transmission Date: 20141002
  Serious: Yes (Hospitalization, Other)
  Sender: FDA-Public Use
  Company Number: BR-ABBVIE-13P-020-1122158-00

PATIENT
  Age: 80 Year
  Sex: Female
  Weight: 39.6 kg

DRUGS (3)
  1. HUMIRA [Suspect]
     Indication: RHEUMATOID ARTHRITIS
     Route: 058
  2. DUOFLAM [Concomitant]
     Indication: PAIN
     Route: 058
  3. PROFLAM [Concomitant]
     Indication: ARTHRALGIA
     Route: 048
     Dates: start: 20130702, end: 20130912

REACTIONS (10)
  - Platelet count decreased [Unknown]
  - Anaemia [Unknown]
  - Urosepsis [Recovered/Resolved]
  - Urinary tract infection [Recovered/Resolved]
  - Malaise [Unknown]
  - Pyrexia [Not Recovered/Not Resolved]
  - Blood pressure increased [Not Recovered/Not Resolved]
  - Musculoskeletal stiffness [Not Recovered/Not Resolved]
  - Weight decreased [Recovering/Resolving]
  - Immunodeficiency [Unknown]
